FAERS Safety Report 23170654 (Version 1)
Quarter: 2023Q4

REPORT INFORMATION
  Report Type: Spontaneous
  Country: US (occurrence: None)
  Receive Date: 20231109
  Receipt Date: 20231109
  Transmission Date: 20240110
  Serious: Yes (Other)
  Sender: FDA-Public Use
  Company Number: None

PATIENT
  Age: 45 Year
  Sex: Female
  Weight: 103.5 kg

DRUGS (10)
  1. TRIAZOLAM [Suspect]
     Active Substance: TRIAZOLAM
     Indication: Anxiety
     Dosage: OTHER QUANTITY : 1 TABLET(S);?OTHER FREQUENCY : ONE HOUR BEFORE PR;?
     Route: 048
     Dates: start: 20231108, end: 20231108
  2. Generic for lexapro [Concomitant]
  3. acyclovir as needed [Concomitant]
  4. Allegra as needed [Concomitant]
  5. nasonex as needed [Concomitant]
  6. Sudafed pe as needed [Concomitant]
  7. daily multivamin [Concomitant]
  8. iron supplement [Concomitant]
  9. acetaminophen as needed [Concomitant]
  10. ibuprofen as needed [Concomitant]

REACTIONS (5)
  - Dizziness [None]
  - Vertigo [None]
  - Nausea [None]
  - Drug ineffective [None]
  - Middle insomnia [None]

NARRATIVE: CASE EVENT DATE: 20231109
